FAERS Safety Report 11074410 (Version 1)
Quarter: 2015Q2

REPORT INFORMATION
  Report Type: Spontaneous
  Country: US (occurrence: US)
  Receive Date: 20150429
  Receipt Date: 20150429
  Transmission Date: 20150821
  Serious: Yes (Other)
  Sender: FDA-Public Use
  Company Number: US-AMGEN-USASP2015040613

PATIENT
  Age: 32 Year
  Sex: Male

DRUGS (4)
  1. LYRICA [Concomitant]
     Active Substance: PREGABALIN
     Dosage: UNK
  2. CIMZIA [Suspect]
     Active Substance: CERTOLIZUMAB PEGOL
     Indication: PRODUCT USED FOR UNKNOWN INDICATION
     Dosage: UNK
     Route: 065
     Dates: start: 201410
  3. HUMIRA [Suspect]
     Active Substance: ADALIMUMAB
     Indication: ANKYLOSING SPONDYLITIS
     Dosage: UNK
     Route: 065
     Dates: end: 20150116
  4. ENBREL [Suspect]
     Active Substance: ETANERCEPT
     Indication: PRODUCT USED FOR UNKNOWN INDICATION
     Dosage: UNK
     Route: 065

REACTIONS (11)
  - Ankylosing spondylitis [Unknown]
  - Spinal pain [Unknown]
  - Muscle tightness [Unknown]
  - Arthralgia [Unknown]
  - Muscular weakness [Unknown]
  - Injection site erythema [Unknown]
  - Drug effect incomplete [Unknown]
  - Injection site warmth [Unknown]
  - Intervertebral disc disorder [Unknown]
  - Myalgia [Unknown]
  - Injection site papule [Unknown]

NARRATIVE: CASE EVENT DATE: 2007
